FAERS Safety Report 7509814-2 (Version None)
Quarter: 2011Q2

REPORT INFORMATION
  Report Type: 
  Country: None (occurrence: None)
  Receive Date: 20110527
  Receipt Date: 20110518
  Transmission Date: 20111010
  Serious: Yes (Hospitalization)
  Sender: FDA-Public Use
  Company Number: A0925088A

PATIENT
  Age: 53 Year
  Sex: Female
  Weight: 63.6 kg

DRUGS (17)
  1. COUMADIN [Concomitant]
  2. XANAX [Concomitant]
  3. BENADRYL [Concomitant]
  4. POTASSIUM CHLORIDE [Concomitant]
  5. ENOXAPARIN [Concomitant]
  6. FLOLAN [Suspect]
     Indication: PULMONARY ARTERIAL HYPERTENSION
     Route: 042
     Dates: start: 20070320
  7. FOSAMAX [Concomitant]
  8. NEURONTIN [Concomitant]
  9. PREVACID [Concomitant]
  10. FLOLAN [Suspect]
     Indication: PULMONARY ARTERIAL HYPERTENSION
     Route: 042
     Dates: start: 20070320
  11. COLACE [Concomitant]
  12. FLONASE [Concomitant]
  13. LASIX [Concomitant]
  14. ALDACTONE [Concomitant]
  15. TYLENOL W/ CODEINE [Concomitant]
  16. REMERON [Concomitant]
  17. CELEXA [Concomitant]

REACTIONS (3)
  - SYNCOPE [None]
  - LOSS OF CONSCIOUSNESS [None]
  - DEFAECATION URGENCY [None]
